FAERS Safety Report 9311707 (Version 2)
Quarter: 2013Q4

REPORT INFORMATION
  Report Type: Spontaneous
  Country: US (occurrence: US)
  Receive Date: 20130528
  Receipt Date: 20131108
  Transmission Date: 20140711
  Serious: Yes (Hospitalization)
  Sender: FDA-Public Use
  Company Number: US-B.I. PHARMACEUTICALS,INC./RIDGEFIELD-2011-BP-07094BP

PATIENT
  Age: 92 Year
  Sex: Female
  Weight: 84.37 kg

DRUGS (8)
  1. PRADAXA [Suspect]
     Indication: ATRIAL FIBRILLATION
     Dosage: 300 MG
     Route: 048
     Dates: start: 20110214, end: 20120313
  2. PRADAXA [Suspect]
     Indication: ANTICOAGULANT THERAPY
  3. TOPROL [Concomitant]
     Indication: HYPERTENSION
     Dosage: 100 MG
     Route: 048
     Dates: start: 2005
  4. SYNTHROID [Concomitant]
     Indication: HYPOTHYROIDISM
     Dosage: 50 MCG
     Route: 048
  5. BUMEX [Concomitant]
     Dosage: 1 MG
     Route: 048
     Dates: start: 201006
  6. LISINOPRIL [Concomitant]
     Indication: HYPERTENSION
     Dosage: 10 MG
     Route: 048
     Dates: start: 201006
  7. VESICARE [Concomitant]
     Indication: BLADDER DISORDER
     Dosage: PRN
     Route: 048
  8. FERROUS SULFATE [Concomitant]
     Dosage: 325 MG
     Route: 048

REACTIONS (3)
  - Gastrointestinal haemorrhage [Recovered/Resolved]
  - Anaemia [Unknown]
  - Epistaxis [Not Recovered/Not Resolved]
